FAERS Safety Report 7905846-0 (Version None)
Quarter: 2011Q4

REPORT INFORMATION
  Report Type: 
  Country: None (occurrence: None)
  Receive Date: 20111110
  Receipt Date: 20111020
  Transmission Date: 20120403
  Serious: Yes (Hospitalization)
  Sender: FDA-Public Use
  Company Number: CA-US-EMD SERONO, INC.-7094703

PATIENT
  Sex: Female

DRUGS (3)
  1. AMITRIPTYLINE HCL [Concomitant]
  2. REBIF [Suspect]
     Indication: RELAPSING-REMITTING MULTIPLE SCLEROSIS
     Dates: start: 20070701
  3. MANTIDAN [Concomitant]

REACTIONS (3)
  - PARAESTHESIA [None]
  - ASTHENIA [None]
  - URINARY TRACT INFECTION [None]
